FAERS Safety Report 25655169 (Version 1)
Quarter: 2025Q3

REPORT INFORMATION
  Report Type: Spontaneous
  Country: CA (occurrence: CA)
  Receive Date: 20250807
  Receipt Date: 20250807
  Transmission Date: 20251020
  Serious: Yes (Life-Threatening, Hospitalization)
  Sender: PFIZER
  Company Number: CA-PFIZER INC-202500158550

PATIENT
  Age: 54 Year
  Sex: Male
  Weight: 100 kg

DRUGS (35)
  1. FRAGMIN [Suspect]
     Active Substance: DALTEPARIN SODIUM
     Indication: Thrombosis prophylaxis
     Dosage: 10000 IU, 1 EVERY 12 HOURS (SOLUTION INTRAVENOUS)
     Route: 058
  2. WARFARIN [Suspect]
     Active Substance: WARFARIN
     Indication: Heart valve replacement
     Route: 048
  3. WARFARIN [Suspect]
     Active Substance: WARFARIN
     Indication: Atrial fibrillation
  4. ACETAMINOPHEN [Concomitant]
     Active Substance: ACETAMINOPHEN
  5. AMIODARONE [Concomitant]
     Active Substance: AMIODARONE
  6. ALBUTEROL\IPRATROPIUM BROMIDE [Concomitant]
     Active Substance: ALBUTEROL\IPRATROPIUM BROMIDE
  7. CALCITRIOL [Concomitant]
     Active Substance: CALCITRIOL
  8. CALCIUM CARBONATE [Concomitant]
     Active Substance: CALCIUM CARBONATE
  9. CHOLECALCIFEROL [Concomitant]
     Active Substance: CHOLECALCIFEROL
  10. FEBUXOSTAT [Concomitant]
     Active Substance: FEBUXOSTAT
  11. FOLIC ACID [Concomitant]
     Active Substance: FOLIC ACID
  12. FUROSEMIDE [Concomitant]
     Active Substance: FUROSEMIDE
  13. GLYCERIN [Concomitant]
     Active Substance: GLYCERIN
  14. HYDROMORPHONE [Concomitant]
     Active Substance: HYDROMORPHONE
  15. LEVOTHYROXINE [Concomitant]
     Active Substance: LEVOTHYROXINE
  16. MAGNESIUM OXIDE [Concomitant]
     Active Substance: MAGNESIUM OXIDE
  17. MEROPENEM [Concomitant]
     Active Substance: MEROPENEM
  18. ONDANSETRON [Concomitant]
     Active Substance: ONDANSETRON
  19. OXAZEPAM [Concomitant]
     Active Substance: OXAZEPAM
  20. PANCRELIPASE [Concomitant]
     Active Substance: PANCRELIPASE
  21. PANTOPRAZOLE [Concomitant]
     Active Substance: PANTOPRAZOLE
  22. PAROXETINE [Concomitant]
     Active Substance: PAROXETINE
  23. POLYETHYLENE GLYCOLS [Concomitant]
     Active Substance: POLYETHYLENE GLYCOLS
  24. PREDNISONE [Concomitant]
     Active Substance: PREDNISONE
  25. PREGABALIN [Concomitant]
     Active Substance: PREGABALIN
  26. QUETIAPINE [Concomitant]
     Active Substance: QUETIAPINE
  27. ALBUTEROL [Concomitant]
     Active Substance: ALBUTEROL
  28. SODIUM PHOSPHATE [Concomitant]
     Active Substance: SODIUM PHOSPHATE
  29. SOLIFENACIN [Concomitant]
     Active Substance: SOLIFENACIN
  30. TOPIRAMATE [Concomitant]
     Active Substance: TOPIRAMATE
  31. VANCOMYCIN [Concomitant]
     Active Substance: VANCOMYCIN
  32. RETINOL [Concomitant]
     Active Substance: RETINOL
  33. VITAMIN D NOS [Concomitant]
     Active Substance: CHOLECALCIFEROL\ERGOCALCIFEROL
  34. VITAMIN E [Concomitant]
     Active Substance: .ALPHA.-TOCOPHEROL
  35. ZOPICLONE [Concomitant]
     Active Substance: ZOPICLONE

REACTIONS (1)
  - Retroperitoneal haemorrhage [Recovered/Resolved]
